FAERS Safety Report 16512861 (Version 1)
Quarter: 2020Q3

REPORT INFORMATION
  Report Type: Report from Study
  Country: KR (occurrence: KR)
  Receive Date: 20190702
  Receipt Date: 20190702
  Transmission Date: 20201104
  Serious: Yes (Death)
  Sender: FDA-Public Use
  Company Number: KR-EMD SERONO-E2B_90068742

PATIENT
  Age: 76 Year
  Sex: Male
  Weight: 53 kg

DRUGS (15)
  1. TALAZOPARIB. [Suspect]
     Active Substance: TALAZOPARIB
     Indication: NEOPLASM
     Dosage: 1 MG, DAILY
     Route: 048
     Dates: start: 20190509, end: 20190516
  2. VALSARTAN. [Concomitant]
     Active Substance: VALSARTAN
     Indication: HYPERTENSION
     Dosage: 160 MG, 1X/DAY
     Route: 048
     Dates: start: 2010
  3. AVELUMAB [Suspect]
     Active Substance: AVELUMAB
     Indication: NEOPLASM
     Dosage: 800 MG, CYCLIC (EVERY 2 WEEKS)
     Route: 042
     Dates: start: 20190509, end: 20190607
  4. GOSERELIN ACETATE [Concomitant]
     Active Substance: GOSERELIN ACETATE
     Indication: HORMONE-REFRACTORY PROSTATE CANCER
     Dosage: 10.8 MG, CYCLIC (EVERY 3 MONTHS)
     Route: 058
     Dates: start: 20190228
  5. FENTANYL. [Concomitant]
     Active Substance: FENTANYL
     Dosage: 1 DF (2.1 MG), ONCE PER 3 DAYS
     Route: 062
     Dates: start: 20190426
  6. CHOLINE ALFOSCERATE [Concomitant]
     Active Substance: CHOLINE ALFOSCERATE
     Indication: PROPHYLAXIS
     Dosage: 400 MG, 1X/DAY
     Route: 048
     Dates: start: 2010
  7. S AMLODIPINE NICOTINATE [Concomitant]
     Indication: HYPERTENSION
     Dosage: 2.5 MG, 1X/DAY
     Route: 048
     Dates: start: 2010
  8. FUROSEMIDE. [Concomitant]
     Active Substance: FUROSEMIDE
     Indication: HYPERTENSION
     Dosage: 20 MG, 2X/DAY
     Route: 048
     Dates: start: 2010
  9. LEVOSULPIRIDE [Concomitant]
     Active Substance: LEVOSULPIRIDE
     Indication: NAUSEA
     Dosage: 25 MG, 3X/DAY
     Route: 048
     Dates: start: 20190523
  10. DICAMAX?D [Concomitant]
     Active Substance: CALCIUM CARBONATE\CHOLECALCIFEROL
     Indication: NUTRITIONAL SUPPLEMENTATION
     Dosage: 250 MG, 1X/DAY
     Route: 048
     Dates: start: 20190509
  11. HARMONILAN [Concomitant]
     Indication: DECREASED APPETITE
     Dosage: 200 ML, 3X/DAY
     Route: 048
     Dates: start: 20190517
  12. TALAZOPARIB. [Suspect]
     Active Substance: TALAZOPARIB
     Dosage: 0.75 MG, DAILY
     Route: 048
     Dates: start: 20190607, end: 20190620
  13. FENTANYL. [Concomitant]
     Active Substance: FENTANYL
     Indication: PAIN MANAGEMENT
     Dosage: 1 DF (4.2 MG), ONCE PER 3 DAYS
     Route: 062
     Dates: start: 20190322
  14. FLUVASTATIN SODIUM. [Concomitant]
     Active Substance: FLUVASTATIN SODIUM
     Indication: HYPERLIPIDAEMIA
     Dosage: 80 MG, 1X/DAY
     Route: 048
     Dates: start: 2010
  15. GALVUSMET [Concomitant]
     Active Substance: METFORMIN HYDROCHLORIDE\VILDAGLIPTIN
     Indication: DIABETES MELLITUS
     Dosage: 1 DF (50/1000 MG), 2X/DAY
     Route: 048
     Dates: start: 2010

REACTIONS (1)
  - Acute respiratory distress syndrome [Fatal]

NARRATIVE: CASE EVENT DATE: 20190620
